FAERS Safety Report 4575015-3 (Version None)
Quarter: 2005Q1

REPORT INFORMATION
  Report Type: 
  Country: None (occurrence: None)
  Receive Date: 20050208
  Receipt Date: 20050126
  Transmission Date: 20050727
  Serious: Yes (Hospitalization)
  Sender: FDA-Public Use
  Company Number: JP-ROCHE-394356

PATIENT
  Age: 60 Year
  Sex: Female
  Weight: 56 kg

DRUGS (15)
  1. PEG-INTERFERON ALFA 2A (RO 25-8310) [Suspect]
     Route: 065
     Dates: start: 20040518, end: 20040622
  2. PEG-INTRON [Suspect]
     Route: 058
     Dates: start: 20030604, end: 20040107
  3. PEG-INTRON [Suspect]
     Route: 058
     Dates: start: 20030212, end: 20030311
  4. PEG-INTRON [Suspect]
     Route: 058
     Dates: start: 20030312, end: 20030401
  5. PEG-INTRON [Suspect]
     Route: 058
     Dates: start: 20030402, end: 20030603
  6. RIBAVIRIN [Suspect]
     Route: 048
     Dates: start: 20030326, end: 20040114
  7. RIBAVIRIN [Suspect]
     Route: 048
     Dates: start: 20030212, end: 20030325
  8. NORVASC [Concomitant]
     Indication: HYPERTENSION
     Route: 048
     Dates: start: 20030430
  9. EURAX [Concomitant]
     Dates: start: 20041022
  10. HYDROCORTISON [Concomitant]
     Dates: start: 20041022
  11. KETOPROFEN [Concomitant]
     Dates: start: 20040107
  12. CARBAMIDE [Concomitant]
     Dates: start: 20040212
  13. VOLTAREN [Concomitant]
     Dates: start: 20040212
  14. LOXONIN [Concomitant]
     Route: 048
     Dates: start: 20040331
  15. REBAMIPIDE [Concomitant]
     Route: 048
     Dates: start: 20040331

REACTIONS (8)
  - EPISTAXIS [None]
  - HAEMOGLOBIN DECREASED [None]
  - LABORATORY TEST ABNORMAL [None]
  - PLATELET COUNT DECREASED [None]
  - SCINTIGRAPHY [None]
  - SINUSITIS [None]
  - THERAPY NON-RESPONDER [None]
  - VENTRICULAR EXTRASYSTOLES [None]
